FAERS Safety Report 22005068 (Version 1)
Quarter: 2023Q1

REPORT INFORMATION
  Report Type: Spontaneous
  Country: US (occurrence: US)
  Receive Date: 20230217
  Receipt Date: 20230217
  Transmission Date: 20230418
  Serious: Yes (Other)
  Sender: FDA-Public Use
  Company Number: US-GLAXOSMITHKLINE-USCH2023GSK007080

PATIENT

DRUGS (3)
  1. LORATADINE [Suspect]
     Active Substance: LORATADINE
     Indication: Conjunctivitis allergic
     Dosage: UNK
  2. LORATADINE [Suspect]
     Active Substance: LORATADINE
     Indication: Eye pruritus
  3. LORATADINE [Suspect]
     Active Substance: LORATADINE
     Indication: Hypersensitivity

REACTIONS (3)
  - Amnesia [Unknown]
  - Suspected product tampering [Unknown]
  - Confusional state [Unknown]
